FAERS Safety Report 5934921-5 (Version None)
Quarter: 2008Q4

REPORT INFORMATION
  Report Type: 
  Country: None (occurrence: None)
  Receive Date: 20081027
  Receipt Date: 20081016
  Transmission Date: 20090506
  Serious: Yes (Other)
  Sender: FDA-Public Use
  Company Number: 2005JP000377

PATIENT
  Age: 44 Year
  Sex: Male

DRUGS (11)
  1. TACROLIMUS [Suspect]
     Indication: LUNG TRANSPLANT
     Dosage: ORAL, 6 MG, ORAL, ORAL
     Route: 048
     Dates: start: 20030622, end: 20030814
  2. TACROLIMUS [Suspect]
     Indication: LUNG TRANSPLANT
     Dosage: ORAL, 6 MG, ORAL, ORAL
     Route: 048
     Dates: start: 20030815, end: 20031113
  3. TACROLIMUS [Suspect]
     Indication: LUNG TRANSPLANT
     Dosage: ORAL, 6 MG, ORAL, ORAL
     Route: 048
     Dates: start: 20031114
  4. CELLCEPT [Suspect]
     Indication: LUNG TRANSPLANT
     Dosage: 1500 MG,  /D, ORAL
     Route: 048
     Dates: start: 20030512
  5. PREDNISOLONE [Suspect]
     Indication: LUNG TRANSPLANT
     Dosage: 25 MG,  /D, ORAL; 17.5 MG, /D, ORAL
     Route: 048
     Dates: start: 20030512
  6. ZOVIRAX [Concomitant]
  7. CHOLEBINE (COLESTILAN) [Concomitant]
  8. GANCICLOVIR [Concomitant]
  9. LIPITOR [Concomitant]
  10. DIFLUCAN [Concomitant]
  11. GASTER D ORODISPERSIBLE CR TABLET [Concomitant]

REACTIONS (3)
  - CYTOMEGALOVIRUS CHORIORETINITIS [None]
  - DIABETES MELLITUS [None]
  - HYPERLIPIDAEMIA [None]
